FAERS Safety Report 22220712 (Version 1)
Quarter: 2023Q2

REPORT INFORMATION
  Report Type: Report from Study
  Country: IT (occurrence: IT)
  Receive Date: 20230418
  Receipt Date: 20230418
  Transmission Date: 20230722
  Serious: Yes (Hospitalization, Other)
  Sender: FDA-Public Use
  Company Number: IT-ABBVIE-4731917

PATIENT
  Age: 63 Year
  Sex: Female

DRUGS (2)
  1. CARBIDOPA\LEVODOPA [Suspect]
     Active Substance: CARBIDOPA\LEVODOPA
     Indication: Parkinson^s disease
     Dosage: DAILY DOSE (MG): 782; PUMP SETTING: MD: 2,8+3; CR: 2,1 (15H),;ED: 2,4
     Route: 050
     Dates: start: 20210614
  2. CARBIDOPA\LEVODOPA [Suspect]
     Active Substance: CARBIDOPA\LEVODOPA

REACTIONS (2)
  - Duodenal perforation [Recovering/Resolving]
  - Bezoar [Unknown]

NARRATIVE: CASE EVENT DATE: 20230301
